FAERS Safety Report 6302067-2 (Version None)
Quarter: 2009Q3

REPORT INFORMATION
  Report Type: 
  Country: None (occurrence: None)
  Receive Date: 20090807
  Receipt Date: 20090806
  Transmission Date: 20100115
  Serious: Yes (Hospitalization)
  Sender: FDA-Public Use
  Company Number: JP-B.I. PHARMACEUTICALS,INC./RIDGEFIELD-2009-BP-09278NB

PATIENT
  Age: 63 Year
  Sex: Female

DRUGS (17)
  1. MICOMBI COMBINATION [Suspect]
     Dosage: 80MG+12.5MG
     Route: 048
     Dates: start: 20090717, end: 20090805
  2. BOIOGITO [Suspect]
     Dosage: 7.5 G
     Route: 048
  3. LIPITOR [Concomitant]
     Route: 065
  4. ACECOL [Concomitant]
     Dosage: 4 MG
     Route: 048
  5. CARDENALIN [Concomitant]
     Dosage: 8 MG
     Route: 048
  6. WARFARIN [Concomitant]
     Dosage: 2 MG
     Route: 048
  7. KREMEZIN [Concomitant]
     Dosage: 6 G
     Route: 048
  8. ARGAMATE [Concomitant]
     Dosage: 75 G
     Route: 048
  9. LASIX [Concomitant]
     Dosage: 20 MG
     Route: 048
  10. ASPIRIN [Concomitant]
     Dosage: 100 MG
     Route: 048
  11. ADALAT [Concomitant]
     Dosage: 40 MG
     Route: 048
  12. ZYLORIC [Concomitant]
     Dosage: 100 MG
     Route: 048
  13. PARIET [Concomitant]
     Dosage: 10 MG
     Route: 048
  14. ALDOMET [Concomitant]
     Dosage: 750 MG
     Route: 048
  15. ARTIST [Concomitant]
     Dosage: 20 MG
     Route: 048
  16. NOVOLIN R [Concomitant]
     Dosage: 24 DF
     Route: 058
  17. FRANDOL S [Concomitant]
     Dosage: 1 DF
     Route: 065

REACTIONS (1)
  - LABORATORY TEST ABNORMAL [None]
